FAERS Safety Report 10102265 (Version 2)
Quarter: 2014Q2

REPORT INFORMATION
  Report Type: Report from Study
  Country: IN (occurrence: IN)
  Receive Date: 20140424
  Receipt Date: 20140430
  Transmission Date: 20141212
  Serious: Yes (Other)
  Sender: FDA-Public Use
  Company Number: IN-ROCHE-1388811

PATIENT
  Age: 36 Year
  Sex: Female
  Weight: 54 kg

DRUGS (2)
  1. ACTEMRA [Suspect]
     Indication: RHEUMATOID ARTHRITIS
     Route: 042
     Dates: start: 2011, end: 201308
  2. ACTEMRA [Suspect]
     Route: 042

REACTIONS (3)
  - Pain [Unknown]
  - Pyrexia [Unknown]
  - Drug dependence [Unknown]
